FAERS Safety Report 23436164 (Version 1)
Quarter: 2024Q1

REPORT INFORMATION
  Report Type: Report from Study
  Country: CA (occurrence: CA)
  Receive Date: 20240124
  Receipt Date: 20240124
  Transmission Date: 20240410
  Serious: Yes (Other)
  Sender: FDA-Public Use
  Company Number: CA-ABBVIE-5591335

PATIENT
  Age: 48 Year
  Sex: Female

DRUGS (1)
  1. RINVOQ [Suspect]
     Active Substance: UPADACITINIB
     Indication: Rheumatoid arthritis
     Dosage: FORM STRENGTH: 15 MILLIGRAM?LAST ADMIN DATE: 2023
     Route: 048
     Dates: start: 20221031

REACTIONS (3)
  - Surgery [Unknown]
  - Wound [Unknown]
  - Post procedural complication [Unknown]

NARRATIVE: CASE EVENT DATE: 20231001
